FAERS Safety Report 6383773-0 (Version None)
Quarter: 2009Q4

REPORT INFORMATION
  Report Type: 
  Country: None (occurrence: None)
  Receive Date: 20091001
  Receipt Date: 20090923
  Transmission Date: 20100525
  Serious: Yes (Hospitalization)
  Sender: FDA-Public Use
  Company Number: RU-BRISTOL-MYERS SQUIBB COMPANY-14785299

PATIENT
  Age: 75 Year
  Sex: Female
  Weight: 68 kg

DRUGS (3)
  1. CETUXIMAB [Suspect]
     Indication: GASTROOESOPHAGEAL CANCER
     Dosage: DRUG INTERRUPTED ON 09SEP09;5MG/ML
     Route: 042
     Dates: start: 20090624
  2. CISPLATIN [Suspect]
     Indication: GASTROOESOPHAGEAL CANCER
     Dosage: ON DAY 1 OF CYCLE;DRUG INTERRUPTED ON 02SEP09.
     Route: 042
     Dates: start: 20090624
  3. XELODA [Suspect]
     Indication: GASTROOESOPHAGEAL CANCER
     Dosage: DRUG INTERRUPTED ON 14SEP09;ON DAY 1-15;FORM:TABLET
     Route: 048
     Dates: start: 20090624

REACTIONS (1)
  - PULMONARY EMBOLISM [None]
